FAERS Safety Report 10416520 (Version 1)
Quarter: 2014Q3

REPORT INFORMATION
  Report Type: Spontaneous
  Country: FR (occurrence: FR)
  Receive Date: 20140828
  Receipt Date: 20140828
  Transmission Date: 20150326
  Serious: Yes (Hospitalization)
  Sender: FDA-Public Use
  Company Number: FR-ASTRAZENECA-2014SE63404

PATIENT
  Age: 4092 Week
  Sex: Male

DRUGS (13)
  1. RISORDAN [Suspect]
     Active Substance: ISOSORBIDE DINITRATE
     Dosage: ONCE/SINGLE ADMINISTRATION
     Route: 013
     Dates: start: 20140717
  2. RISORDAN [Suspect]
     Active Substance: ISOSORBIDE DINITRATE
     Dosage: ONCE/SINGLE ADMINISTRATION
     Route: 013
     Dates: start: 20140723
  3. ALTEIS [Concomitant]
     Active Substance: OLMESARTAN MEDOXOMIL
     Route: 048
  4. KARDEGIC [Concomitant]
     Active Substance: ASPIRIN LYSINE
     Route: 048
     Dates: start: 20140714
  5. VISIPAQUE [Suspect]
     Active Substance: IODIXANOL
     Dosage: 320 MILLIGRAMS OF IODINE PER MILLILITRES, ONE DF ONCE/SINGLE ADMINISTRATION
     Route: 013
     Dates: start: 20140717
  6. VISIPAQUE [Suspect]
     Active Substance: IODIXANOL
     Dosage: 320 MILLIGRAMS OF IODINE PER MILLILITRES, ONE DF ONCE/SINGLE ADMINISTRATION
     Route: 013
     Dates: start: 20140723
  7. TAHOR [Suspect]
     Active Substance: ATORVASTATIN CALCIUM
     Route: 048
     Dates: start: 20140715, end: 20140725
  8. BISOCE [Concomitant]
     Active Substance: BISOPROLOL
     Route: 048
     Dates: start: 20140714
  9. BRILIQUE [Suspect]
     Active Substance: TICAGRELOR
     Route: 048
     Dates: start: 20140714, end: 20140725
  10. ISOPTIN [Suspect]
     Active Substance: VERAPAMIL HYDROCHLORIDE
     Dosage: ONCE/SINGLE ADMINISTRATION
     Route: 013
     Dates: start: 20140723
  11. CORDARONE [Suspect]
     Active Substance: AMIODARONE HYDROCHLORIDE
     Route: 048
     Dates: start: 20140714, end: 20140715
  12. ISOPTIN [Suspect]
     Active Substance: VERAPAMIL HYDROCHLORIDE
     Dosage: ONCE/SINGLE ADMINISTRATION
     Route: 013
     Dates: start: 20140717
  13. KARDEGIC [Concomitant]
     Active Substance: ASPIRIN LYSINE
     Route: 048
     Dates: end: 20140714

REACTIONS (1)
  - Immune thrombocytopenic purpura [Recovered/Resolved]

NARRATIVE: CASE EVENT DATE: 20140725
